FAERS Safety Report 5038063-5 (Version None)
Quarter: 2006Q2

REPORT INFORMATION
  Report Type: 
  Country: None (occurrence: None)
  Receive Date: 20060602
  Receipt Date: 20060324
  Transmission Date: 20061013
  Serious: No
  Sender: FDA-Public Use
  Company Number: US200603006106

PATIENT
  Sex: Female

DRUGS (5)
  1. ALIMTA [Suspect]
     Indication: LUNG NEOPLASM MALIGNANT
     Dosage: OTHER, INTRAVENOUS
     Route: 042
     Dates: start: 20060317
  2. CYANOCOBALAMIN [Concomitant]
  3. FOLIC ACID [Concomitant]
  4. AVONEX [Concomitant]
  5. ALEVE [Concomitant]

REACTIONS (5)
  - CHEST PAIN [None]
  - DIFFICULTY IN WALKING [None]
  - FATIGUE [None]
  - MULTIPLE SCLEROSIS [None]
  - PYREXIA [None]
